FAERS Safety Report 7418227-3 (Version None)
Quarter: 2011Q2

REPORT INFORMATION
  Report Type: 
  Country: None (occurrence: None)
  Receive Date: 20110415
  Receipt Date: 20110406
  Transmission Date: 20111010
  Serious: Yes (Hospitalization, Disabling, Other)
  Sender: FDA-Public Use
  Company Number: AU-AMGEN-AUSSP2011019303

PATIENT
  Sex: Female
  Weight: 80 kg

DRUGS (9)
  1. LIPITOR [Concomitant]
     Dosage: UNK UNK, UNK
  2. METFORMIN HCL [Concomitant]
     Dosage: UNK UNK, UNK
  3. ENBREL [Suspect]
     Indication: PSORIASIS
     Dosage: 50 MG, WEEKLY
     Route: 058
     Dates: start: 20110121, end: 20110322
  4. METHOTREXATE [Concomitant]
     Indication: PSORIASIS
     Dosage: 10 MG, WEEKLY
     Route: 048
  5. MESASAL [Concomitant]
     Dosage: UNK UNK, UNK
  6. VITAMIN D [Concomitant]
     Dosage: UNK UNK, UNK
  7. FOLIC ACID [Concomitant]
     Dosage: UNK UNK, UNK
  8. ACIMAX [Concomitant]
     Dosage: UNK UNK, UNK
  9. ATACAND HCT [Concomitant]
     Dosage: UNK

REACTIONS (7)
  - PARAESTHESIA ORAL [None]
  - MALAISE [None]
  - TYPE I HYPERSENSITIVITY [None]
  - INJECTION SITE REACTION [None]
  - DIZZINESS [None]
  - ERYTHEMA [None]
  - HYPOAESTHESIA ORAL [None]
